FAERS Safety Report 17241958 (Version 3)
Quarter: 2020Q1

REPORT INFORMATION
  Report Type: Report from Study
  Country: US (occurrence: US)
  Receive Date: 20200107
  Receipt Date: 20200310
  Transmission Date: 20200409
  Serious: Yes (Death, Hospitalization, Other)
  Sender: FDA-Public Use
  Company Number: NVSC2019US085640

PATIENT
  Age: 64 Year
  Sex: Male

DRUGS (4)
  1. INC424A [Suspect]
     Active Substance: RUXOLITINIB
     Indication: PRIMARY MYELOFIBROSIS
     Dosage: 5 MG, BID
     Route: 048
     Dates: start: 20191211
  2. FLUDARABINE PHOSPHATE. [Suspect]
     Active Substance: FLUDARABINE PHOSPHATE
     Indication: PRODUCT USED FOR UNKNOWN INDICATION
     Dosage: 30 MG/M2
     Route: 042
     Dates: start: 20191211, end: 20191215
  3. INC424A [Suspect]
     Active Substance: RUXOLITINIB
     Dosage: 5 MG, QD
     Route: 065
     Dates: start: 20191218
  4. MELPHALAN. [Suspect]
     Active Substance: MELPHALAN
     Indication: MYELOFIBROSIS
     Dosage: 140 MG/M2
     Route: 042
     Dates: start: 20191216, end: 20191216

REACTIONS (2)
  - Sepsis [Fatal]
  - Enterocolitis [Unknown]

NARRATIVE: CASE EVENT DATE: 20191223
